FAERS Safety Report 15340189 (Version 1)
Quarter: 2018Q3

REPORT INFORMATION
  Report Type: Spontaneous
  Country: US (occurrence: US)
  Receive Date: 20180831
  Receipt Date: 20180831
  Transmission Date: 20181010
  Serious: Yes (Other)
  Sender: FDA-Public Use
  Company Number: US-TEVA-2018-US-950325

PATIENT
  Age: 54 Year
  Sex: Female

DRUGS (1)
  1. HYDROXYCHLOROQUINE [Suspect]
     Active Substance: HYDROXYCHLOROQUINE
     Dosage: THE WOMAN HAD BEEN RECEIVING HYDROXYCHLOROQUINE APPROXIMATELY 5.3MG/KG FROM 10 YEARS
     Route: 065

REACTIONS (1)
  - Acquired pigmented retinopathy [Unknown]
